FAERS Safety Report 13932901 (Version 1)
Quarter: 2017Q3

REPORT INFORMATION
  Report Type: Spontaneous
  Country: SK (occurrence: SK)
  Receive Date: 20170904
  Receipt Date: 20170904
  Transmission Date: 20171127
  Serious: Yes (Hospitalization, Other)
  Sender: FDA-Public Use
  Company Number: SK-TEVA-803485ACC

PATIENT
  Age: 62 Year
  Sex: Male

DRUGS (2)
  1. BENDAMUSTINE HYDROCHLORIDE. [Suspect]
     Active Substance: BENDAMUSTINE HYDROCHLORIDE
     Indication: CHRONIC LYMPHOCYTIC LEUKAEMIA
     Route: 042
     Dates: start: 201512, end: 201605
  2. RITUXIMAB. [Concomitant]
     Active Substance: RITUXIMAB
     Indication: CHRONIC LYMPHOCYTIC LEUKAEMIA
     Route: 065
     Dates: start: 201512, end: 201605

REACTIONS (7)
  - Metastases to lung [Unknown]
  - Bronchopulmonary aspergillosis [Recovering/Resolving]
  - Prescribed underdose [Unknown]
  - Lung disorder [Recovering/Resolving]
  - Chronic lymphocytic leukaemia [Unknown]
  - Diffuse panbronchiolitis [Recovering/Resolving]
  - Respiratory tract infection [Unknown]
